FAERS Safety Report 21937579 (Version 1)
Quarter: 2023Q1

REPORT INFORMATION
  Report Type: Spontaneous
  Country: US (occurrence: None)
  Receive Date: 20230201
  Receipt Date: 20230201
  Transmission Date: 20230417
  Serious: No
  Sender: FDA-Public Use
  Company Number: None

PATIENT

DRUGS (1)
  1. ISOFLURANE [Suspect]
     Active Substance: ISOFLURANE

REACTIONS (3)
  - Product dispensing error [None]
  - Manufacturing product shipping issue [None]
  - Packaging design issue [None]
